FAERS Safety Report 5963390-4 (Version None)
Quarter: 2008Q4

REPORT INFORMATION
  Report Type: 
  Country: None (occurrence: None)
  Receive Date: 20081124
  Receipt Date: 20081119
  Transmission Date: 20090506
  Serious: Yes (Other)
  Sender: FDA-Public Use
  Company Number: B0547027A

PATIENT
  Age: 11 Year
  Sex: Male

DRUGS (3)
  1. LAMOTRIGINE [Suspect]
     Indication: EPILEPSY
  2. CARBAMAZEPINE [Suspect]
     Indication: EPILEPSY
  3. VALPROATE SODIUM [Suspect]
     Indication: EPILEPSY

REACTIONS (7)
  - HYPERPARATHYROIDISM [None]
  - HYPOTHYROIDISM [None]
  - JOINT CONTRACTURE [None]
  - JOINT RANGE OF MOTION DECREASED [None]
  - JOINT SWELLING [None]
  - KNEE DEFORMITY [None]
  - RICKETS [None]
